FAERS Safety Report 13869268 (Version 2)
Quarter: 2018Q2

REPORT INFORMATION
  Report Type: Report from Study
  Country: JP (occurrence: JP)
  Receive Date: 20170815
  Receipt Date: 20180518
  Transmission Date: 20180711
  Serious: Yes (Other)
  Sender: FDA-Public Use
  Company Number: JP-INCYTE CORPORATION-2017IN003439

PATIENT

DRUGS (25)
  1. JAKAVI [Suspect]
     Active Substance: RUXOLITINIB
     Dosage: 20 MG, BID
     Route: 048
     Dates: start: 20160910, end: 20161214
  2. HYDREA [Concomitant]
     Active Substance: HYDROXYUREA
     Indication: MYELOPROLIFERATIVE NEOPLASM
     Dosage: 500 MG, UNK
     Route: 048
     Dates: start: 20170214, end: 20170514
  3. JAKAVI [Suspect]
     Active Substance: RUXOLITINIB
     Indication: MYELOFIBROSIS
     Dosage: 5 MG, BID
     Route: 048
     Dates: start: 20150625, end: 20150715
  4. JAKAVI [Suspect]
     Active Substance: RUXOLITINIB
     Dosage: 15 MG, BID
     Route: 048
     Dates: start: 20150908, end: 20151023
  5. JAKAVI [Suspect]
     Active Substance: RUXOLITINIB
     Dosage: 17.5 MG, BID
     Route: 048
     Dates: start: 20151024, end: 20151120
  6. JAKAVI [Suspect]
     Active Substance: RUXOLITINIB
     Dosage: 25 MG, BID
     Route: 048
     Dates: start: 20160511
  7. JAKAVI [Suspect]
     Active Substance: RUXOLITINIB
     Dosage: 15 MG, BID
     Route: 048
     Dates: start: 20170502
  8. JAKAVI [Suspect]
     Active Substance: RUXOLITINIB
     Dosage: UNK
  9. FEBURIC [Concomitant]
     Active Substance: FEBUXOSTAT
     Indication: MYELOPROLIFERATIVE NEOPLASM
     Dosage: 20 MG, UNK
     Route: 048
     Dates: start: 20170512
  10. JAKAVI [Suspect]
     Active Substance: RUXOLITINIB
     Dosage: UNK
  11. NIZORAL [Concomitant]
     Active Substance: KETOCONAZOLE
     Indication: PRODUCT USED FOR UNKNOWN INDICATION
     Dosage: AS APPROPRIATE
     Route: 061
     Dates: start: 20151204, end: 20160425
  12. KETOPAMIN [Concomitant]
     Indication: PRODUCT USED FOR UNKNOWN INDICATION
     Dosage: AS APPROPRIATE
     Route: 061
     Dates: start: 20160426
  13. HYDREA [Concomitant]
     Active Substance: HYDROXYUREA
     Dosage: 3000 MG, UNK
     Route: 048
     Dates: start: 20170517
  14. JAKAVI [Suspect]
     Active Substance: RUXOLITINIB
     Dosage: 40 MG, BID
     Route: 048
     Dates: start: 20160217, end: 20160510
  15. HYDREA [Concomitant]
     Active Substance: HYDROXYUREA
     Dosage: 2000 MG, UNK
     Route: 048
     Dates: start: 20170515, end: 20170516
  16. LEVOFLOXACIN. [Concomitant]
     Active Substance: LEVOFLOXACIN
     Indication: OPPORTUNISTIC INFECTION
     Dosage: 500 MG, UNK
     Route: 048
     Dates: start: 20170419, end: 20170425
  17. JAKAVI [Suspect]
     Active Substance: RUXOLITINIB
     Dosage: 20 MG, BID
     Route: 048
     Dates: start: 20150716, end: 20150907
  18. JAKAVI [Suspect]
     Active Substance: RUXOLITINIB
     Dosage: 20 MG, BID
     Route: 048
     Dates: start: 20170222, end: 20170501
  19. ASTAT [Concomitant]
     Indication: PRODUCT USED FOR UNKNOWN INDICATION
     Dosage: AS APPROPRIATE
     Route: 061
     Dates: end: 20151203
  20. TRAMAL [Concomitant]
     Active Substance: TRAMADOL
     Indication: SPLENIC INFARCTION
     Dosage: UNK
     Route: 065
  21. JAKAVI [Suspect]
     Active Substance: RUXOLITINIB
     Dosage: 20 MG, BID
     Route: 048
     Dates: start: 20151121, end: 20160119
  22. JAKAVI [Suspect]
     Active Substance: RUXOLITINIB
     Dosage: 25 MG, BID
     Route: 048
     Dates: start: 20160120, end: 20160216
  23. PELTAZON [Concomitant]
     Indication: SPLENIC INFARCTION
     Dosage: UNK
     Route: 065
  24. JAKAVI [Suspect]
     Active Substance: RUXOLITINIB
     Dosage: 25 MG, BID
     Route: 048
     Dates: start: 20161215, end: 20170221
  25. JAKAVI [Suspect]
     Active Substance: RUXOLITINIB
     Dosage: UNK

REACTIONS (2)
  - Gamma-glutamyltransferase increased [Recovering/Resolving]
  - Dermatitis [Recovered/Resolved]

NARRATIVE: CASE EVENT DATE: 20160202
